FAERS Safety Report 8854024 (Version 1)
Quarter: 2012Q4

REPORT INFORMATION
  Report Type: Spontaneous
  Country: US (occurrence: None)
  Receive Date: 20121016
  Receipt Date: 20121016
  Transmission Date: 20130627
  Serious: Yes (Death)
  Sender: FDA-Public Use
  Company Number: 1053087-2009-0006

PATIENT
  Age: 45 Year
  Sex: Male
  Weight: 116.58 kg

DRUGS (1)
  1. SODIUM CITRATE [Suspect]
     Indication: APHERESIS
     Route: 042
     Dates: start: 20061025

REACTIONS (1)
  - Myocardial infarction [None]
